FAERS Safety Report 10733343 (Version 2)
Quarter: 2015Q3

REPORT INFORMATION
  Report Type: Spontaneous
  Country: JP (occurrence: JP)
  Receive Date: 20150123
  Receipt Date: 20150910
  Transmission Date: 20151125
  Serious: Yes (Death, Hospitalization, Other)
  Sender: FDA-Public Use
  Company Number: PHHY2015JP008787

PATIENT
  Age: 90 Year
  Sex: Female

DRUGS (7)
  1. RIVASTACH [Suspect]
     Active Substance: RIVASTIGMINE
     Dosage: 6.9 MG, QD (RIVASTIGMINE BASE 13.5MG PER 24 HOUR)
     Route: 062
  2. RIVASTACH [Suspect]
     Active Substance: RIVASTIGMINE
     Indication: DEMENTIA ALZHEIMER^S TYPE
     Dosage: 1.9 MG, QD (RIVASTIGMINE BASE 4.5MG PER 24 HOUR)
     Route: 062
  3. RIVASTACH [Suspect]
     Active Substance: RIVASTIGMINE
     Dosage: 4.6 MG, QD(RIVASTIGMINE BASE 9MG PER 24 HOUR)
     Route: 062
  4. RIVASTACH [Suspect]
     Active Substance: RIVASTIGMINE
     Dosage: 9.5 MG, QD (RIVASTIGMINE BASE 18MG PER 24 HOUR)
     Route: 062
  5. RIVASTACH [Suspect]
     Active Substance: RIVASTIGMINE
     Dosage: 18 MG PATCH CUT INTO ONE FOURTH HAD BEEN APPLIED AS INSTRUCTED PHYSICIAN
     Route: 062
  6. PHENOBARBITAL. [Concomitant]
     Active Substance: PHENOBARBITAL
     Indication: PRODUCT USED FOR UNKNOWN INDICATION
     Route: 065
  7. RIVASTACH [Suspect]
     Active Substance: RIVASTIGMINE
     Dosage: 6.9 MG, QD (RIVASTIGMINE BASE 13.5MG PER 24 HOUR)
     Route: 062
     Dates: end: 20141001

REACTIONS (11)
  - Posture abnormal [Unknown]
  - Hypophagia [Recovered/Resolved]
  - Weight increased [Recovered/Resolved]
  - Metastases to liver [Fatal]
  - Feeling abnormal [Recovering/Resolving]
  - Gait disturbance [Unknown]
  - Diabetes mellitus [Fatal]
  - Pancreatic carcinoma [Fatal]
  - Heat illness [Fatal]
  - Drug prescribing error [Unknown]
  - Speech disorder [Recovered/Resolved]

NARRATIVE: CASE EVENT DATE: 201309
